FAERS Safety Report 9325585 (Version 2)
Quarter: 2013Q3

REPORT INFORMATION
  Report Type: Report from Study
  Country: NL (occurrence: NL)
  Receive Date: 20130604
  Receipt Date: 20130703
  Transmission Date: 20140515
  Serious: Yes (Hospitalization)
  Sender: FDA-Public Use
  Company Number: PHHY2013NL044302

PATIENT
  Age: 48 Year
  Sex: Male
  Weight: 47 kg

DRUGS (9)
  1. SANDOSTATIN LAR [Suspect]
     Indication: ADENOMATOUS POLYPOSIS COLI
     Dosage: 20 MG, ONCE EVERY 4 WEEKS
     Dates: start: 2004
  2. SANDOSTATIN LAR [Suspect]
     Dosage: 20 MG, ONCE EVERY 4 WEEKS
     Dates: start: 20060119
  3. ACETYLSALICYLIC ACID [Concomitant]
     Dosage: UNK UKN, UNK
  4. AZATHIOPRIN [Concomitant]
     Dosage: UNK UKN, UNK
  5. CAPTOPRIL [Concomitant]
     Dosage: UNK UKN, UNK
  6. ETALPHA [Concomitant]
     Dosage: UNK UKN, UNK
  7. FUROSEMIDE [Concomitant]
     Dosage: UNK UKN, UNK
  8. CRESTOR [Concomitant]
     Dosage: UNK UKN, UNK
  9. PREDNISOLONE [Concomitant]
     Dosage: UNK UKN, UNK

REACTIONS (3)
  - Anal abscess [Recovering/Resolving]
  - Subcutaneous abscess [Recovered/Resolved with Sequelae]
  - Pain [Unknown]
